FAERS Safety Report 20035292 (Version 2)
Quarter: 2021Q4

REPORT INFORMATION
  Report Type: Spontaneous
  Country: US (occurrence: US)
  Receive Date: 20211104
  Receipt Date: 20211124
  Transmission Date: 20220303
  Serious: Yes (Other)
  Sender: FDA-Public Use
  Company Number: US-BAYER-2021A242337

PATIENT
  Age: 24 Year
  Sex: Male

DRUGS (2)
  1. KOVALTRY [Suspect]
     Active Substance: ANTIHEMOPHILIC FACTOR, HUMAN RECOMBINANT
     Dosage: 1500 IU, PRN
     Route: 042
  2. KOVALTRY [Suspect]
     Active Substance: ANTIHEMOPHILIC FACTOR, HUMAN RECOMBINANT
     Dosage: 1 DF, FOR THE RIGHT ELBOW BLEED AND SWELLING TREATMENT
     Route: 042

REACTIONS (3)
  - Haemarthrosis [Recovered/Resolved]
  - Joint swelling [None]
  - Joint injury [None]

NARRATIVE: CASE EVENT DATE: 20211022
